FAERS Safety Report 18588994 (Version 1)
Quarter: 2020Q4

REPORT INFORMATION
  Report Type: Report from Study
  Country: FR (occurrence: FR)
  Receive Date: 20201208
  Receipt Date: 20201208
  Transmission Date: 20210114
  Serious: Yes (Hospitalization)
  Sender: FDA-Public Use
  Company Number: FR-ROCHE-2724237

PATIENT
  Age: 39 Year
  Sex: Female
  Weight: 51 kg

DRUGS (4)
  1. ATEZOLIZUMAB. [Suspect]
     Active Substance: ATEZOLIZUMAB
     Indication: CERVIX CARCINOMA
     Dosage: ON 06/NOV/2020, HE RECEIVED THE MOST RECENT DOSE OF ATEZOLIZUMAB PRIOR TO SAE.
     Route: 042
     Dates: start: 20200831
  2. PACLITAXEL. [Suspect]
     Active Substance: PACLITAXEL
     Indication: CERVIX CARCINOMA
     Dosage: ON 06/NOV/2020, HE RECEIVED THE MOST RECENT DOSE OF PACLITAXEL PRIOR TO SAE.
     Route: 042
     Dates: start: 20200831
  3. CARBOPLATIN. [Suspect]
     Active Substance: CARBOPLATIN
     Indication: CERVIX CARCINOMA
     Dosage: ON 06/NOV/2020, HE RECEIVED THE MOST RECENT DOSE OF CARBOPLATIN PRIOR TO SAE.
     Route: 042
     Dates: start: 20200831
  4. BEVACIZUMAB. [Suspect]
     Active Substance: BEVACIZUMAB
     Indication: CERVIX CARCINOMA
     Dosage: ON 06/NOV/2020, HE RECEIVED THE MOST RECENT DOSE OF BEVACIZUMAB PRIOR TO SAE.
     Route: 042
     Dates: start: 20200831

REACTIONS (1)
  - General physical health deterioration [Not Recovered/Not Resolved]

NARRATIVE: CASE EVENT DATE: 20201130
